FAERS Safety Report 21050049 (Version 2)
Quarter: 2022Q3

REPORT INFORMATION
  Report Type: Report from Study
  Country: IT (occurrence: None)
  Receive Date: 20220706
  Receipt Date: 20220713
  Transmission Date: 20221027
  Serious: Yes (Other)
  Sender: FDA-Public Use
  Company Number: IT-ROCHE-3128996

PATIENT
  Age: 43 Year
  Sex: Male
  Weight: 76 kg

DRUGS (2)
  1. VEMURAFENIB [Suspect]
     Active Substance: VEMURAFENIB
     Indication: Malignant melanoma
     Dosage: DATE OF LAST DOSE PRIOR TO ADVERSE EVENT/SPECIAL SITUATION: 23/JUN/2022
     Route: 048
     Dates: start: 20220615
  2. COBIMETINIB [Suspect]
     Active Substance: COBIMETINIB
     Indication: Malignant melanoma
     Dosage: DOSE :20 UNIT: 3, DATE OF LAST DOSE PRIOR TO ADVERSE EVENT/SPECIAL SITUATION: 24/JUN/2022
     Route: 048
     Dates: start: 20220615, end: 20220624

REACTIONS (2)
  - Retinal disorder [Recovered/Resolved]
  - Macular thickening [Recovered/Resolved]

NARRATIVE: CASE EVENT DATE: 20220620
